FAERS Safety Report 11455181 (Version 1)
Quarter: 2015Q3

REPORT INFORMATION
  Report Type: Spontaneous
  Country: JP (occurrence: JP)
  Receive Date: 20150903
  Receipt Date: 20150903
  Transmission Date: 20151125
  Serious: Yes (Death, Hospitalization)
  Sender: FDA-Public Use
  Company Number: JP-CELGENE-JPN-2015086152

PATIENT
  Age: 66 Year
  Sex: Female

DRUGS (2)
  1. VIDAZA [Suspect]
     Active Substance: AZACITIDINE
     Indication: PRODUCT USED FOR UNKNOWN INDICATION
     Route: 065
  2. REVLIMID [Suspect]
     Active Substance: LENALIDOMIDE
     Indication: MYELODYSPLASTIC SYNDROME
     Dosage: 10 MILLIGRAM
     Route: 048
     Dates: start: 20120817, end: 20140120

REACTIONS (3)
  - Pneumonia [Unknown]
  - Pancytopenia [Unknown]
  - Multi-organ failure [Fatal]

NARRATIVE: CASE EVENT DATE: 20131117
